FAERS Safety Report 18156681 (Version 1)
Quarter: 2020Q3

REPORT INFORMATION
  Report Type: Spontaneous
  Country: US (occurrence: US)
  Receive Date: 20200817
  Receipt Date: 20200817
  Transmission Date: 20201103
  Serious: Yes (Death)
  Sender: FDA-Public Use
  Company Number: None

PATIENT
  Age: 94 Year
  Sex: Male
  Weight: 92.3 kg

DRUGS (1)
  1. REMDESIVIR. [Suspect]
     Active Substance: REMDESIVIR
     Indication: COVID-19
     Route: 040
     Dates: start: 20200810, end: 20200814

REACTIONS (5)
  - Hypoxia [None]
  - Abdominal distension [None]
  - Constipation [None]
  - Infrequent bowel movements [None]
  - Cardio-respiratory arrest [None]

NARRATIVE: CASE EVENT DATE: 20200814
